FAERS Safety Report 15755487 (Version 6)
Quarter: 2019Q2

REPORT INFORMATION
  Report Type: Report from Study
  Country: GB (occurrence: GB)
  Receive Date: 20181224
  Receipt Date: 20190611
  Transmission Date: 20190711
  Serious: Yes (Hospitalization, Other)
  Sender: FDA-Public Use
  Company Number: PHHY2018GB190560

PATIENT
  Age: 76 Year
  Sex: Female

DRUGS (1)
  1. SANDOSTATIN LAR DEPOT [Suspect]
     Active Substance: OCTREOTIDE ACETATE
     Indication: NEUROENDOCRINE TUMOUR
     Dosage: 30 MG, QMO
     Route: 030

REACTIONS (9)
  - Abdominal pain upper [Unknown]
  - Fluid retention [Unknown]
  - Post procedural infection [Unknown]
  - Rash erythematous [Unknown]
  - Diarrhoea [Recovered/Resolved]
  - Intestinal varices [Unknown]
  - Rectal haemorrhage [Recovering/Resolving]
  - Food poisoning [Recovered/Resolved]
  - Malaise [Recovered/Resolved]

NARRATIVE: CASE EVENT DATE: 20181122
